FAERS Safety Report 11980272 (Version 1)
Quarter: 2016Q1

REPORT INFORMATION
  Report Type: Spontaneous
  Country: CH (occurrence: CH)
  Receive Date: 20160129
  Receipt Date: 20160129
  Transmission Date: 20160526
  Serious: Yes (Death, Hospitalization)
  Sender: FDA-Public Use
  Company Number: CH-MYLANLABS-2016M1003716

PATIENT

DRUGS (7)
  1. ENOXAPARIN SODIUM. [Concomitant]
     Active Substance: ENOXAPARIN SODIUM
     Indication: ACUTE CORONARY SYNDROME
     Dosage: 1 MG/KG
     Route: 065
  2. TICAGRELOR [Concomitant]
     Active Substance: TICAGRELOR
     Indication: ACUTE CORONARY SYNDROME
     Dosage: 180MG
     Route: 065
  3. TIROFIBAN [Concomitant]
     Active Substance: TIROFIBAN
     Indication: ACUTE CORONARY SYNDROME
     Dosage: 600 MICROG/HOUR OVER 24 HOURS
     Route: 065
  4. ASPIRIN                            /00002701/ [Concomitant]
     Active Substance: ASPIRIN
     Route: 065
  5. DESMOPRESSIN [Suspect]
     Active Substance: DESMOPRESSIN
     Indication: HAEMORRHAGE INTRACRANIAL
     Dosage: 0.3 MICROG/KG
     Route: 065
  6. TICAGRELOR [Concomitant]
     Active Substance: TICAGRELOR
     Route: 065
  7. ASPIRIN                            /00002701/ [Concomitant]
     Active Substance: ASPIRIN
     Indication: ACUTE CORONARY SYNDROME
     Dosage: 300MG
     Route: 065

REACTIONS (1)
  - Drug ineffective [Fatal]
